FAERS Safety Report 11805351 (Version 1)
Quarter: 2015Q4

REPORT INFORMATION
  Report Type: Spontaneous
  Country: US (occurrence: US)
  Receive Date: 20151207
  Receipt Date: 20151207
  Transmission Date: 20160305
  Serious: Yes (Other)
  Sender: FDA-Public Use
  Company Number: US-CIPLA LTD.-2015US09039

PATIENT

DRUGS (4)
  1. LEVETIRACETAM. [Suspect]
     Active Substance: LEVETIRACETAM
     Indication: PROPHYLAXIS
     Dosage: 750 MG, BID
     Route: 065
  2. LEVETIRACETAM. [Suspect]
     Active Substance: LEVETIRACETAM
     Dosage: 1000 MG, TID
     Route: 065
  3. OXCARBAZEPINE. [Suspect]
     Active Substance: OXCARBAZEPINE
     Indication: GENERALISED TONIC-CLONIC SEIZURE
     Route: 065
  4. TOPIRAMATE. [Suspect]
     Active Substance: TOPIRAMATE
     Indication: GENERALISED TONIC-CLONIC SEIZURE
     Route: 065

REACTIONS (3)
  - Bradycardia [None]
  - Drug ineffective [Unknown]
  - Hypothermia [None]
